FAERS Safety Report 12506105 (Version 1)
Quarter: 2016Q2

REPORT INFORMATION
  Report Type: Spontaneous
  Country: TR (occurrence: TR)
  Receive Date: 20160628
  Receipt Date: 20160628
  Transmission Date: 20160815
  Serious: Yes (Other)
  Sender: FDA-Public Use
  Company Number: TR-TAKEDA-2016TUS010328

PATIENT
  Age: 6 Month
  Sex: Male

DRUGS (2)
  1. COLCHICINE. [Suspect]
     Active Substance: COLCHICINE
     Indication: FAMILIAL MEDITERRANEAN FEVER
     Dosage: 2 MG, UNK
     Route: 065
  2. DESFERRIOXAMINE [Concomitant]
     Active Substance: DEFEROXAMINE MESYLATE
     Indication: IRON OVERLOAD
     Dosage: 40 MG/KG, QD
     Route: 058

REACTIONS (4)
  - Drug administered to patient of inappropriate age [Not Recovered/Not Resolved]
  - Premature baby [Unknown]
  - Intellectual disability [Not Recovered/Not Resolved]
  - Foetal growth restriction [Not Recovered/Not Resolved]
